FAERS Safety Report 7894800-3 (Version None)
Quarter: 2011Q4

REPORT INFORMATION
  Report Type: 
  Country: None (occurrence: None)
  Receive Date: 20111106
  Receipt Date: 20110819
  Transmission Date: 20120403
  Serious: No
  Sender: FDA-Public Use
  Company Number: US-AMGEN-USASP2011042495

PATIENT
  Age: 72 Year
  Sex: Female

DRUGS (2)
  1. ENBREL [Suspect]
     Dosage: 50 MG, QWK
     Dates: start: 20010101, end: 20110501
  2. ENBREL [Suspect]
     Indication: RHEUMATOID ARTHRITIS
     Dosage: 50 MG, QWK
     Dates: start: 20110615

REACTIONS (9)
  - JOINT RANGE OF MOTION DECREASED [None]
  - IMPAIRED HEALING [None]
  - CATARACT [None]
  - PAIN [None]
  - TOOTH INFECTION [None]
  - GINGIVAL PAIN [None]
  - ASTHENOPIA [None]
  - GINGIVAL INFECTION [None]
  - TOOTHACHE [None]
